FAERS Safety Report 4784784-9 (Version None)
Quarter: 2005Q3

REPORT INFORMATION
  Report Type: 
  Country: None (occurrence: None)
  Receive Date: 20050930
  Receipt Date: 20050923
  Transmission Date: 20060218
  Serious: Yes (Other)
  Sender: FDA-Public Use
  Company Number: PHBS2005IE14073

PATIENT
  Age: 55 Year
  Sex: Female

DRUGS (2)
  1. CHEMOTHERAPEUTICS,OTHER [Concomitant]
  2. ZOMETA [Suspect]
     Indication: BREAST CANCER METASTATIC

REACTIONS (6)
  - ABSCESS JAW [None]
  - ASEPTIC NECROSIS BONE [None]
  - INFECTION [None]
  - LOCAL SWELLING [None]
  - PAIN IN JAW [None]
  - TOOTH EXTRACTION [None]
